FAERS Safety Report 10953591 (Version 9)
Quarter: 2015Q2

REPORT INFORMATION
  Report Type: Spontaneous
  Country: US (occurrence: US)
  Receive Date: 20150325
  Receipt Date: 20150617
  Transmission Date: 20150821
  Serious: Yes (Hospitalization, Other)
  Sender: FDA-Public Use
  Company Number: US-UNITED THERAPEUTICS-UNT-2015-002824

PATIENT
  Age: 61 Year
  Sex: Female
  Weight: 91.61 kg

DRUGS (7)
  1. REMODULIN [Suspect]
     Active Substance: TREPROSTINIL
     Dosage: 0.0335 ?G/KG, QID
     Route: 041
     Dates: start: 20150403
  2. REMODULIN [Suspect]
     Active Substance: TREPROSTINIL
     Dosage: 0.0575 ?G/KG, CONTINUING
     Route: 058
     Dates: start: 20140308
  3. OPSUMIT [Concomitant]
     Active Substance: MACITENTAN
     Indication: PRODUCT USED FOR UNKNOWN INDICATION
  4. REMODULIN [Suspect]
     Active Substance: TREPROSTINIL
     Dosage: 0.0575 ?G/KG, CONTINUING
     Route: 058
  5. REMODULIN [Suspect]
     Active Substance: TREPROSTINIL
     Indication: PULMONARY ARTERIAL HYPERTENSION
     Dosage: 0.0575 ?G/KG, CONTINUING
     Route: 041
     Dates: start: 20140308
  6. ASPIRIN                            /00002701/ [Concomitant]
     Active Substance: ASPIRIN
     Indication: PRODUCT USED FOR UNKNOWN INDICATION
  7. COUMADIN [Concomitant]
     Active Substance: WARFARIN SODIUM
     Indication: PRODUCT USED FOR UNKNOWN INDICATION

REACTIONS (25)
  - Nausea [Unknown]
  - Chest pain [Unknown]
  - Infusion site reaction [Unknown]
  - Presyncope [Unknown]
  - Infusion site pain [Not Recovered/Not Resolved]
  - Oedema peripheral [Unknown]
  - Retching [Unknown]
  - Chills [Unknown]
  - Drug dose omission [Unknown]
  - Fatigue [Unknown]
  - Asthenia [Unknown]
  - Contusion [Unknown]
  - Injection site nodule [Unknown]
  - Fall [Unknown]
  - Chest pain [Unknown]
  - Device dislocation [Unknown]
  - Oxygen saturation decreased [Unknown]
  - Clostridium difficile infection [Unknown]
  - Malaise [Unknown]
  - Injection site erythema [Unknown]
  - Chest discomfort [Unknown]
  - Gait disturbance [Unknown]
  - Device related infection [Unknown]
  - Vomiting [Unknown]
  - Septic shock [Unknown]

NARRATIVE: CASE EVENT DATE: 20150310
